FAERS Safety Report 26073865 (Version 1)
Quarter: 2025Q4

REPORT INFORMATION
  Report Type: Spontaneous
  Country: US (occurrence: US)
  Receive Date: 20251121
  Receipt Date: 20251121
  Transmission Date: 20260118
  Serious: No
  Sender: STALLERGENES
  Company Number: US-STALCOR-2025-AER-02639

PATIENT
  Age: 5 Year
  Sex: Female

DRUGS (3)
  1. PALFORZIA [Suspect]
     Active Substance: PEANUT
     Indication: Food allergy
     Dosage: REACTIVE DOSE AT LEVEL 4, 20MG DISPENSED ON 27-AUG-2025
     Route: 048
  2. HYDROCORTISONE CREAM 0.5% [Concomitant]
     Indication: Product used for unknown indication
  3. ZYRTEC [Concomitant]
     Active Substance: CETIRIZINE HYDROCHLORIDE
     Indication: Product used for unknown indication

REACTIONS (2)
  - Pyrexia [Recovered/Resolved with Sequelae]
  - Intentional dose omission [Recovered/Resolved with Sequelae]
